FAERS Safety Report 15370754 (Version 1)
Quarter: 2018Q3

REPORT INFORMATION
  Report Type: Spontaneous
  Country: FR (occurrence: FR)
  Receive Date: 20180911
  Receipt Date: 20180911
  Transmission Date: 20181010
  Serious: Yes (Life-Threatening, Hospitalization)
  Sender: FDA-Public Use
  Company Number: FR-PFIZER INC-2018365757

PATIENT
  Age: 58 Year
  Sex: Female

DRUGS (6)
  1. ATARAX [HYDROXYZINE] [Concomitant]
     Dosage: 25 MG, 1X/DAY
     Route: 065
  2. CYMBALTA [Concomitant]
     Active Substance: DULOXETINE HYDROCHLORIDE
  3. RIVOTRIL [Suspect]
     Active Substance: CLONAZEPAM
     Dosage: 1 DF (1 FLASK), 1X/DAY
     Route: 002
     Dates: start: 20110525, end: 20110525
  4. LYSANXIA [Suspect]
     Active Substance: PRAZEPAM
     Dosage: 11 DF, 1X/DAY
     Route: 002
     Dates: start: 20110525, end: 20110525
  5. LYRICA [Suspect]
     Active Substance: PREGABALIN
     Dosage: 41 DF, 1X/DAY
     Route: 002
     Dates: start: 20110525, end: 20110525
  6. IXPRIM [Suspect]
     Active Substance: ACETAMINOPHEN\TRAMADOL HYDROCHLORIDE
     Dosage: 67 DF, 1X/DAY
     Route: 002
     Dates: start: 20110525, end: 20110525

REACTIONS (5)
  - Bradypnoea [Recovered/Resolved]
  - Hepatocellular injury [Recovered/Resolved]
  - Respiratory acidosis [Recovered/Resolved]
  - Hypothermia [Recovered/Resolved]
  - Depressed level of consciousness [Recovered/Resolved]

NARRATIVE: CASE EVENT DATE: 20110525
